FAERS Safety Report 4878180-3 (Version None)
Quarter: 2005Q4

REPORT INFORMATION
  Report Type: 
  Country: None (occurrence: None)
  Receive Date: 20051209
  Receipt Date: 20050725
  Transmission Date: 20060501
  Serious: Yes (Death)
  Sender: FDA-Public Use
  Company Number: USA-2005-0020835

PATIENT
  Age: 46 Year
  Sex: Male
  Weight: 79.4 kg

DRUGS (10)
  1. OXYCONTIN [Suspect]
     Indication: PAIN
     Dosage: 80 MG, UNK, UNKNOWN
     Route: 065
  2. HYDROCODONE BITARTRATE [Suspect]
     Route: 065
  3. HYDROMORPHONE HCL [Suspect]
     Route: 065
  4. OXYMORPHONE HYDROCHLORIDE [Suspect]
     Route: 065
  5. ALPRAZOLAM [Suspect]
     Route: 065
  6. CITALOPRAM (CITALOPRAM) [Suspect]
     Route: 065
  7. ACETAMINOPHEN [Suspect]
     Route: 065
  8. CAFFEINE (CAFFEINE) [Suspect]
     Route: 065
  9. NICOTINE [Suspect]
     Route: 065
  10. ANTIDEPRESSANTS [Concomitant]

REACTIONS (1)
  - ACCIDENTAL OVERDOSE [None]
